FAERS Safety Report 7342000-8 (Version None)
Quarter: 2011Q1

REPORT INFORMATION
  Report Type: 
  Country: None (occurrence: None)
  Receive Date: 20110309
  Receipt Date: 20110211
  Transmission Date: 20110831
  Serious: No
  Sender: FDA-Public Use
  Company Number: US-B.I. PHARMACEUTICALS,INC./RIDGEFIELD-2011-BP-05562BP

PATIENT
  Age: 64 Year
  Sex: Male

DRUGS (16)
  1. PRADAXA [Suspect]
     Indication: ATRIAL FIBRILLATION
     Dosage: 300 MG
     Route: 048
     Dates: start: 20100101, end: 20110211
  2. LOVAZA [Concomitant]
     Dosage: 1000 MG
     Route: 048
  3. PLAVIX [Concomitant]
     Dosage: 75 MG
     Route: 048
  4. ASPIRIN [Concomitant]
     Dosage: 81 MG
     Route: 048
  5. FOLIC ACID [Concomitant]
     Dosage: 2 MG
     Route: 048
  6. VITAMIN E [Concomitant]
     Dosage: 400 MG
     Route: 048
  7. VITAMIN B COMPLEX CAP [Concomitant]
     Dosage: 1 TABLET
     Route: 048
  8. CARVEDILOL [Concomitant]
     Dosage: 12.5 MG
     Route: 048
  9. RANEXA [Concomitant]
     Dosage: 1000 MG
     Route: 048
  10. ASCORBIC ACID [Concomitant]
     Dosage: 1000 MG
     Route: 048
  11. QUINAPRIL HCL [Concomitant]
     Dosage: 40 MG
     Route: 048
  12. POTASSIUM [Concomitant]
     Dosage: 2 M2OI
     Route: 048
  13. COQ10 [Concomitant]
     Dosage: 200 MG
     Route: 048
  14. LASIX [Concomitant]
     Indication: CARDIAC FAILURE CONGESTIVE
     Dosage: 80 MG
     Route: 048
  15. LIPITOR [Concomitant]
     Indication: BLOOD CHOLESTEROL
     Dosage: 40 MG
     Route: 048
  16. DIGOXIN [Concomitant]
     Dosage: 0.25 MG
     Route: 048

REACTIONS (3)
  - OEDEMA PERIPHERAL [None]
  - CONTUSION [None]
  - PAIN IN EXTREMITY [None]
